FAERS Safety Report 5569078-6 (Version None)
Quarter: 2007Q4

REPORT INFORMATION
  Report Type: 
  Country: None (occurrence: None)
  Receive Date: 20071220
  Receipt Date: 20070628
  Transmission Date: 20080405
  Serious: No
  Sender: FDA-Public Use
  Company Number: A0660719A

PATIENT
  Age: 74 Year
  Sex: Male

DRUGS (9)
  1. AVODART [Suspect]
     Indication: BENIGN PROSTATIC HYPERPLASIA
     Dosage: .5MG PER DAY
     Route: 048
     Dates: start: 20070626
  2. MULTIVITAMIN [Concomitant]
  3. INSULIN [Concomitant]
  4. VASOLAN [Concomitant]
  5. UNKNOWN MEDICATION [Concomitant]
  6. DIGOXIN [Concomitant]
  7. COUMADIN [Concomitant]
  8. MAGNESIUM SUPPLEMENT [Concomitant]
  9. LEXAPRO [Concomitant]

REACTIONS (2)
  - CONSTIPATION [None]
  - NAUSEA [None]
